FAERS Safety Report 6389052-X (Version None)
Quarter: 2009Q4

REPORT INFORMATION
  Report Type: 
  Country: None (occurrence: None)
  Receive Date: 20091001
  Receipt Date: 20090925
  Transmission Date: 20100525
  Serious: Yes (Death, Other)
  Sender: FDA-Public Use
  Company Number: 2009-192474-NL

PATIENT
  Age: 45 Year
  Sex: Female
  Weight: 59.9 kg

DRUGS (3)
  1. NUVARING [Suspect]
     Indication: CONTRACEPTION
     Dosage: VAG
     Route: 067
     Dates: start: 20070109, end: 20080321
  2. MAXAIR MDI [Concomitant]
  3. EXCEDRIN (MIGRAINE) [Concomitant]

REACTIONS (3)
  - DYSPNOEA [None]
  - MALAISE [None]
  - PULMONARY EMBOLISM [None]
